FAERS Safety Report 7996990-0 (Version None)
Quarter: 2011Q4

REPORT INFORMATION
  Report Type: 
  Country: None (occurrence: None)
  Receive Date: 20111221
  Receipt Date: 20111214
  Transmission Date: 20120403
  Serious: Yes (Hospitalization)
  Sender: FDA-Public Use
  Company Number: PHEH2011US011921

PATIENT
  Sex: Female

DRUGS (5)
  1. BLOOD TRANSFUSION, AUXILIARY PRODUCTS [Concomitant]
     Dosage: EVERY MONTH
  2. BENADRYL [Concomitant]
     Indication: CONSTIPATION
     Dosage: UNK UKN, PRN
  3. OXYCONTIN [Concomitant]
     Dosage: 30 MG, BID FOR 5 DAYS
     Route: 048
  4. EXJADE [Suspect]
     Dosage: 1250 MG, QD
     Route: 048
  5. MIRALAX [Concomitant]
     Indication: CONSTIPATION
     Dosage: 1 DF, DAILY
     Route: 048

REACTIONS (20)
  - STRESS [None]
  - URINE PROTEIN/CREATININE RATIO INCREASED [None]
  - HYPOPHAGIA [None]
  - BACK PAIN [None]
  - RETICULOCYTE COUNT INCREASED [None]
  - DYSMENORRHOEA [None]
  - SICKLE CELL ANAEMIA WITH CRISIS [None]
  - PAIN [None]
  - DIZZINESS [None]
  - MUSCLE SPASMS [None]
  - PRURITUS [None]
  - ABDOMINAL PAIN LOWER [None]
  - BLOOD BILIRUBIN INCREASED [None]
  - HAEMOGLOBIN S DECREASED [None]
  - DIARRHOEA [None]
  - SERUM FERRITIN INCREASED [None]
  - ALANINE AMINOTRANSFERASE INCREASED [None]
  - CARDIAC MURMUR [None]
  - PULSE ABNORMAL [None]
  - ASPARTATE AMINOTRANSFERASE INCREASED [None]
